FAERS Safety Report 13912382 (Version 1)
Quarter: 2017Q3

REPORT INFORMATION
  Report Type: Spontaneous
  Country: US (occurrence: US)
  Receive Date: 20170828
  Receipt Date: 20170828
  Transmission Date: 20171127
  Serious: No
  Sender: FDA-Public Use
  Company Number: US-TOLMAR, INC.-2016US013798

PATIENT
  Sex: Male

DRUGS (2)
  1. ELIGARD [Suspect]
     Active Substance: LEUPROLIDE ACETATE
     Indication: PROSTATE CANCER
     Dosage: 45 MG, 6 MONTHS
     Route: 058
     Dates: start: 20160829, end: 20160829
  2. ELIGARD [Suspect]
     Active Substance: LEUPROLIDE ACETATE
     Indication: PROSTATE CANCER
     Dosage: 7.5 MG, EVERY 6 MONTHS
     Route: 058
     Dates: start: 20160711

REACTIONS (2)
  - Prostatic specific antigen increased [Not Recovered/Not Resolved]
  - Blood testosterone abnormal [Not Recovered/Not Resolved]

NARRATIVE: CASE EVENT DATE: 20161212
